FAERS Safety Report 10160090 (Version 1)
Quarter: 2014Q2

REPORT INFORMATION
  Report Type: Spontaneous
  Country: US (occurrence: US)
  Receive Date: 20140508
  Receipt Date: 20140508
  Transmission Date: 20141212
  Serious: No
  Sender: FDA-Public Use
  Company Number: US-GLAXOSMITHKLINE-A1064208A

PATIENT
  Sex: Female

DRUGS (14)
  1. TYKERB [Suspect]
     Indication: PRODUCT USED FOR UNKNOWN INDICATION
     Dosage: 250MG UNKNOWN
     Route: 048
  2. ACETAMINOPHEN [Concomitant]
  3. DEXAMETHASONE SODIUM PHOSPHATE [Concomitant]
  4. DIPHENHYDRAMINE HCL [Concomitant]
  5. DOCETAXEL [Concomitant]
  6. HERCEPTIN [Concomitant]
  7. KYTRIL [Concomitant]
  8. LEVETIRACETAM [Concomitant]
  9. PERTUZUMAB [Concomitant]
  10. SODIUM CHLORIDE [Concomitant]
  11. TRAZODONE HCL [Concomitant]
  12. ATIVAN [Concomitant]
  13. KEPPRA [Concomitant]
  14. WELLBUTRIN [Concomitant]

REACTIONS (6)
  - Malnutrition [Unknown]
  - Decreased appetite [Unknown]
  - Eye operation [Unknown]
  - Back pain [Recovering/Resolving]
  - Asthenia [Unknown]
  - Sleep disorder [Recovering/Resolving]
